FAERS Safety Report 5010361-0 (Version None)
Quarter: 2006Q2

REPORT INFORMATION
  Report Type: 
  Country: None (occurrence: None)
  Receive Date: 20060523
  Receipt Date: 20060512
  Transmission Date: 20061013
  Serious: Yes (Other)
  Sender: FDA-Public Use
  Company Number: HQWYE346515MAY06

PATIENT
  Sex: Female

DRUGS (1)
  1. MYLOTARG [Suspect]
     Dosage: 2 DOSES

REACTIONS (1)
  - EJECTION FRACTION DECREASED [None]
